FAERS Safety Report 11800180 (Version 1)
Quarter: 2015Q4

REPORT INFORMATION
  Report Type: Spontaneous
  Country: CN (occurrence: CN)
  Receive Date: 20151203
  Receipt Date: 20151203
  Transmission Date: 20160305
  Serious: Yes (Hospitalization, Other)
  Sender: FDA-Public Use
  Company Number: CN-GILEAD-2015-0185622

PATIENT
  Age: 57 Year
  Sex: Male

DRUGS (2)
  1. ENTECAVIR. [Concomitant]
     Active Substance: ENTECAVIR
     Indication: CHRONIC HEPATITIS B
     Dosage: UNK
     Route: 048
  2. ADEFOVIR DIPIVOXIL. [Suspect]
     Active Substance: ADEFOVIR DIPIVOXIL
     Indication: CHRONIC HEPATITIS B
     Dosage: 10 MG, QD
     Route: 065
     Dates: start: 200612

REACTIONS (12)
  - Hypophosphataemia [Recovering/Resolving]
  - Osteoporosis [Unknown]
  - Spider naevus [Unknown]
  - Osteomalacia [Recovering/Resolving]
  - Bone density decreased [Unknown]
  - Compression fracture [Unknown]
  - Protein urine present [Recovered/Resolved]
  - Glucose urine present [Recovered/Resolved]
  - Back pain [Unknown]
  - Blood phosphorus decreased [Recovered/Resolved]
  - Pain [Unknown]
  - Urine phosphorus increased [Unknown]
